FAERS Safety Report 18942113 (Version 1)
Quarter: 2021Q1

REPORT INFORMATION
  Report Type: Report from Study
  Country: CA (occurrence: CA)
  Receive Date: 20210225
  Receipt Date: 20210225
  Transmission Date: 20210420
  Serious: Yes (Other)
  Sender: FDA-Public Use
  Company Number: CA-TAKEDA-2021TUS009973

PATIENT
  Age: 23 Year
  Sex: Male

DRUGS (6)
  1. VITAMIN D NOS [Concomitant]
     Active Substance: VITAMIN D NOS
     Dosage: UNK
  2. SALOFALK [AMINOSALICYLIC ACID] [Concomitant]
     Active Substance: AMINOSALICYLIC ACID
     Dosage: 4 GRAM, QD
     Dates: start: 2016
  3. PREDNISONE. [Concomitant]
     Active Substance: PREDNISONE
     Dosage: UNK
     Dates: start: 2016
  4. VEDOLIZUMAB [Suspect]
     Active Substance: VEDOLIZUMAB
     Indication: COLITIS ULCERATIVE
     Dosage: 300 MILLIGRAM
     Route: 042
     Dates: start: 20201012
  5. VITAMIN C [Concomitant]
     Active Substance: ASCORBIC ACID
     Dosage: UNK
  6. PENTASA [Concomitant]
     Active Substance: MESALAMINE
     Dosage: 4 GRAM
     Dates: start: 202001

REACTIONS (1)
  - Nephrolithiasis [Unknown]
